FAERS Safety Report 6406362-8 (Version None)
Quarter: 2009Q4

REPORT INFORMATION
  Report Type: 
  Country: None (occurrence: None)
  Receive Date: 20091019
  Receipt Date: 20090918
  Transmission Date: 20100525
  Serious: No
  Sender: FDA-Public Use
  Company Number: US-BAYER-200914744BCC

PATIENT
  Age: 60 Year
  Sex: Male
  Weight: 120 kg

DRUGS (10)
  1. ALEVE (CAPLET) [Suspect]
     Indication: PYREXIA
     Dosage: TOTAL DAILY DOSE: 220 MG  UNIT DOSE: 220 MG
     Route: 048
     Dates: start: 20090917
  2. ALEVE [Suspect]
     Indication: PYREXIA
     Dosage: AS USED: 440 MG  UNIT DOSE: 220 MG
     Route: 048
     Dates: start: 20090918
  3. ALEVE [Suspect]
     Dosage: AS USED: 440 MG  UNIT DOSE: 220 MG
     Route: 048
     Dates: start: 20090917
  4. FOLIC ACID [Concomitant]
     Route: 065
  5. THERA-M [Concomitant]
     Route: 065
  6. LISINOPRIL [Concomitant]
     Route: 065
  7. ASPIRIN [Concomitant]
     Route: 065
  8. ATENOLOL [Concomitant]
     Route: 065
  9. DRAMAMINE [Concomitant]
     Route: 065
  10. CLINDAMYCIN HYDROCHLORIDE [Concomitant]
     Route: 065

REACTIONS (2)
  - DIARRHOEA [None]
  - PYREXIA [None]
